FAERS Safety Report 9365702 (Version 1)
Quarter: 2013Q2

REPORT INFORMATION
  Report Type: Spontaneous
  Country: US (occurrence: US)
  Receive Date: 20130625
  Receipt Date: 20130625
  Transmission Date: 20140414
  Serious: Yes (Hospitalization)
  Sender: FDA-Public Use
  Company Number: US-BAYER-2013-077713

PATIENT
  Age: 17 Year
  Sex: Female
  Weight: 66 kg

DRUGS (5)
  1. YAZ [Suspect]
  2. GIANVI [Suspect]
  3. CLARITIN [Concomitant]
  4. TRAMADOL [Concomitant]
     Dosage: UNK
     Dates: start: 20101008
  5. NITROFURANTOIN [Concomitant]
     Dosage: UNK
     Dates: start: 20100924

REACTIONS (1)
  - Cerebrovascular accident [None]
